FAERS Safety Report 21562289 (Version 1)
Quarter: 2022Q4

REPORT INFORMATION
  Report Type: Spontaneous
  Country: JP (occurrence: JP)
  Receive Date: 20221107
  Receipt Date: 20221107
  Transmission Date: 20230112
  Serious: Yes (Disabling, Other)
  Sender: FDA-Public Use
  Company Number: JP-ALLERGAN-2228658US

PATIENT
  Sex: Male

DRUGS (3)
  1. ALPHAGAN P [Suspect]
     Active Substance: BRIMONIDINE TARTRATE
     Indication: Glaucoma
     Dosage: 2 GTT
     Route: 047
     Dates: start: 2015, end: 20190910
  2. RESCULA OPHTALMIC SOLUTION [Concomitant]
     Indication: Glaucoma
     Dosage: 2 GTT, QD
     Route: 047
     Dates: start: 20220911
  3. RESCULA OPHTALMIC SOLUTION [Concomitant]
     Dosage: 2 GTT, QD
     Route: 047
     Dates: start: 2015, end: 20190910

REACTIONS (3)
  - Corneal opacity [Recovered/Resolved]
  - Conjunctivitis [Recovered/Resolved]
  - Hyperaemia [Recovering/Resolving]

NARRATIVE: CASE EVENT DATE: 20191016
